FAERS Safety Report 9863964 (Version 3)
Quarter: 2014Q1

REPORT INFORMATION
  Report Type: Spontaneous
  Country: CY (occurrence: CY)
  Receive Date: 20140203
  Receipt Date: 20140207
  Transmission Date: 20141002
  Serious: Yes (Other)
  Sender: FDA-Public Use
  Company Number: PHHY2014CY011902

PATIENT
  Age: 52 Year
  Sex: Male
  Weight: 105 kg

DRUGS (5)
  1. GILENYA [Suspect]
     Indication: RELAPSING-REMITTING MULTIPLE SCLEROSIS
     Dosage: 0.5 MG, QD
     Route: 048
     Dates: start: 20131030, end: 20140127
  2. CARBAMAZEPINE [Concomitant]
     Indication: NEURALGIA
     Dosage: 200 MG, BID
  3. EFEXOR [Concomitant]
     Indication: DEPRESSION
     Dosage: 75 MG, BID
  4. SIMVASTATIN [Concomitant]
     Indication: HYPERCHOLESTEROLAEMIA
     Dosage: 20 MG, QD
  5. B-COMPLEX                          /00003501/ [Concomitant]

REACTIONS (1)
  - Macular degeneration [Unknown]
